FAERS Safety Report 18581010 (Version 1)
Quarter: 2020Q4

REPORT INFORMATION
  Report Type: Spontaneous
  Country: SG (occurrence: SG)
  Receive Date: 20201204
  Receipt Date: 20201204
  Transmission Date: 20210114
  Serious: Yes (Hospitalization, Other)
  Sender: FDA-Public Use
  Company Number: NVSC2020SG321382

PATIENT
  Age: 55 Year
  Sex: Male

DRUGS (28)
  1. FUROSEMIDE. [Suspect]
     Active Substance: FUROSEMIDE
     Dosage: 40 MG, QMO
     Route: 065
     Dates: start: 201606
  2. LOSARTAN. [Suspect]
     Active Substance: LOSARTAN
     Dosage: 50 MG, QMO
     Route: 065
     Dates: start: 201606
  3. METFORMIN [Suspect]
     Active Substance: METFORMIN HYDROCHLORIDE
     Indication: PRODUCT USED FOR UNKNOWN INDICATION
     Dosage: 850 MG, BID
     Route: 065
     Dates: start: 201604
  4. LOSARTAN. [Suspect]
     Active Substance: LOSARTAN
     Indication: PRODUCT USED FOR UNKNOWN INDICATION
     Dosage: 50 MG, QMO
     Route: 065
     Dates: start: 201604
  5. METFORMIN [Suspect]
     Active Substance: METFORMIN HYDROCHLORIDE
     Dosage: 850 MG, BID
     Route: 065
     Dates: start: 201609
  6. ASPIRIN. [Suspect]
     Active Substance: ASPIRIN
     Dosage: 100 MG, QMO
     Route: 065
     Dates: start: 201609
  7. SPIRONOLACTONE. [Suspect]
     Active Substance: SPIRONOLACTONE
     Dosage: 25 MG, QMO
     Route: 065
     Dates: start: 201606
  8. ATORVASTATIN [Suspect]
     Active Substance: ATORVASTATIN
     Dosage: 40 MG, QD (ON-EVERY NIGHT)
     Route: 065
     Dates: start: 201606
  9. SACUBITRIL,VALSARTAN [Suspect]
     Active Substance: SACUBITRIL\VALSARTAN
     Dosage: 100 MG, BID
     Route: 065
     Dates: start: 201609
  10. BISOPROLOL [Suspect]
     Active Substance: BISOPROLOL
     Indication: PRODUCT USED FOR UNKNOWN INDICATION
     Dosage: 2.5 MG, BID
     Route: 065
     Dates: start: 201604
  11. POTASSIUM [Suspect]
     Active Substance: POTASSIUM
     Dosage: 600 MG, QMO
     Route: 065
     Dates: start: 201609
  12. GLIPIZIDE. [Suspect]
     Active Substance: GLIPIZIDE
     Dosage: 7.5 MG, BID
     Route: 065
     Dates: start: 201606
  13. IVABRADINE [Suspect]
     Active Substance: IVABRADINE
     Indication: PRODUCT USED FOR UNKNOWN INDICATION
     Route: 065
  14. FUROSEMIDE. [Suspect]
     Active Substance: FUROSEMIDE
     Indication: PRODUCT USED FOR UNKNOWN INDICATION
     Dosage: 40 MG, QMO
     Route: 065
     Dates: start: 201604
  15. FUROSEMIDE. [Suspect]
     Active Substance: FUROSEMIDE
     Dosage: 40 MG, QMO
     Route: 065
     Dates: start: 201609
  16. ATORVASTATIN [Suspect]
     Active Substance: ATORVASTATIN
     Dosage: 40 MG, QD (ON-EVERY NIGHT)
     Route: 065
     Dates: start: 201609
  17. SPIRONOLACTONE. [Suspect]
     Active Substance: SPIRONOLACTONE
     Dosage: 25 MG, QMO
     Route: 065
     Dates: start: 201609
  18. GLIPIZIDE. [Suspect]
     Active Substance: GLIPIZIDE
     Dosage: 7.5 MG, BID
     Route: 065
     Dates: start: 201609
  19. ASPIRIN. [Suspect]
     Active Substance: ASPIRIN
     Dosage: 100 MG, QMO
     Route: 065
     Dates: start: 201606
  20. POTASSIUM [Suspect]
     Active Substance: POTASSIUM
     Indication: PRODUCT USED FOR UNKNOWN INDICATION
     Dosage: 600 MG, QMO
     Route: 065
     Dates: start: 201604
  21. POTASSIUM [Suspect]
     Active Substance: POTASSIUM
     Dosage: 600 MG, QMO
     Route: 065
     Dates: start: 201606
  22. SPIRONOLACTONE. [Suspect]
     Active Substance: SPIRONOLACTONE
     Indication: PRODUCT USED FOR UNKNOWN INDICATION
     Dosage: 25 MG, QMO
     Route: 065
     Dates: start: 201604
  23. SACUBITRIL,VALSARTAN [Suspect]
     Active Substance: SACUBITRIL\VALSARTAN
     Indication: PRODUCT USED FOR UNKNOWN INDICATION
     Dosage: 50 MG, BID
     Route: 065
     Dates: start: 201606
  24. LOSARTAN. [Suspect]
     Active Substance: LOSARTAN
     Dosage: 50 MG, QMO
     Route: 065
     Dates: start: 201609
  25. ATORVASTATIN [Suspect]
     Active Substance: ATORVASTATIN
     Indication: PRODUCT USED FOR UNKNOWN INDICATION
     Dosage: 40 MG, QD (ON-EVERY NIGHT)
     Route: 065
     Dates: start: 201604
  26. METFORMIN [Suspect]
     Active Substance: METFORMIN HYDROCHLORIDE
     Dosage: 850 MG, BID
     Route: 065
     Dates: start: 201606
  27. ASPIRIN. [Suspect]
     Active Substance: ASPIRIN
     Indication: PRODUCT USED FOR UNKNOWN INDICATION
     Dosage: 100 MG, QMO
     Route: 065
     Dates: start: 201604
  28. GLIPIZIDE. [Suspect]
     Active Substance: GLIPIZIDE
     Indication: PRODUCT USED FOR UNKNOWN INDICATION
     Dosage: 7.5 MG, BID
     Route: 065
     Dates: start: 201604

REACTIONS (8)
  - Left ventricular dilatation [Unknown]
  - Hypotension [Unknown]
  - N-terminal prohormone brain natriuretic peptide increased [Unknown]
  - Ejection fraction decreased [Recovering/Resolving]
  - Glycosylated haemoglobin increased [Unknown]
  - Cardiac failure [Unknown]
  - Blood bilirubin increased [Unknown]
  - Right ventricular dilatation [Unknown]

NARRATIVE: CASE EVENT DATE: 201604
